FAERS Safety Report 16174325 (Version 1)
Quarter: 2019Q2

REPORT INFORMATION
  Report Type: Spontaneous
  Country: US (occurrence: US)
  Receive Date: 20190306
  Receipt Date: 20190306
  Transmission Date: 20190711
  Serious: Yes (Disabling, Other)
  Sender: FDA-Public Use
  Company Number: None

PATIENT
  Age: 58 Year
  Sex: Female
  Weight: 94.5 kg

DRUGS (2)
  1. HYDROXYZINE PAMOATE 25 MG CAPSULE [Suspect]
     Active Substance: HYDROXYZINE PAMOATE
     Indication: SLEEP DISORDER THERAPY
     Dates: start: 20181201, end: 20190202
  2. HYDROXYZINE PAMOATE 25 MG CAPSULE [Suspect]
     Active Substance: HYDROXYZINE PAMOATE
     Indication: ANXIETY
     Dates: start: 20181201, end: 20190202

REACTIONS (8)
  - Anxiety [None]
  - Therapeutic product effect decreased [None]
  - Panic attack [None]
  - Mood swings [None]
  - Product appearance confusion [None]
  - Depression [None]
  - Sleep disorder [None]
  - Product substitution issue [None]

NARRATIVE: CASE EVENT DATE: 20190201
